FAERS Safety Report 5925034-7 (Version None)
Quarter: 2008Q4

REPORT INFORMATION
  Report Type: 
  Country: None (occurrence: None)
  Receive Date: 20081021
  Receipt Date: 20081014
  Transmission Date: 20090506
  Serious: Yes (Other)
  Sender: FDA-Public Use
  Company Number: US-BAYER-200815291NA

PATIENT
  Age: 23 Year
  Sex: Female
  Weight: 128 kg

DRUGS (1)
  1. MIRENA [Suspect]
     Indication: CONTRACEPTION
     Route: 015
     Dates: start: 20051018, end: 20071029

REACTIONS (2)
  - ABORTION SPONTANEOUS [None]
  - PREGNANCY TEST FALSE POSITIVE [None]
